FAERS Safety Report 15885333 (Version 1)
Quarter: 2019Q1

REPORT INFORMATION
  Report Type: Spontaneous
  Country: FR (occurrence: FR)
  Receive Date: 20190129
  Receipt Date: 20190129
  Transmission Date: 20190417
  Serious: Yes (Hospitalization)
  Sender: FDA-Public Use
  Company Number: FR-TEVA-2019-FR-1003209

PATIENT
  Age: 58 Year
  Sex: Male
  Weight: 65 kg

DRUGS (8)
  1. MOPRAL 20 MG, COMPRIM? GASTRO-R?SISTANT [Concomitant]
     Active Substance: OMEPRAZOLE
  2. METFORMINE [Concomitant]
     Active Substance: METFORMIN HYDROCHLORIDE
  3. COAPROVEL 300 MG/12,5 MG, COMPRIM? [Concomitant]
     Active Substance: HYDROCHLOROTHIAZIDE\IRBESARTAN
  4. LERCAN 20 MG, COMPRIM? PELLICUL? [Concomitant]
     Active Substance: LERCANIDIPINE HYDROCHLORIDE
  5. ASPIRINE PROTECT 100 MG, COMPRIM? GASTRO-R?SISTANT [Concomitant]
     Active Substance: ASPIRIN
  6. DOXAZOSINE [Suspect]
     Active Substance: DOXAZOSIN MESYLATE
     Indication: BENIGN PROSTATIC HYPERPLASIA
     Dosage: 4 MILLIGRAM DAILY;
     Route: 048
     Dates: start: 20180509, end: 20180510
  7. CARDENSIEL 1,25 MG, COMPRIM? PELLICUL? [Interacting]
     Active Substance: BISOPROLOL FUMARATE
  8. TAHOR [Concomitant]
     Active Substance: ATORVASTATIN CALCIUM

REACTIONS (3)
  - Syncope [Recovered/Resolved]
  - Drug interaction [Unknown]
  - Road traffic accident [Recovered/Resolved]

NARRATIVE: CASE EVENT DATE: 20180510
